FAERS Safety Report 8757235 (Version 1)
Quarter: 2012Q4

REPORT INFORMATION
  Report Type: 
  Country: DE (occurrence: US)
  Receive Date: 20120828
  Receipt Date: 20120828
  Transmission Date: 20130627
  Serious: No
  Sender: FDA-Public Use
  Company Number: US-009507513-1207USA010943

PATIENT

DRUGS (3)
  1. ETONOGESTREL IMPLANT- IMPLANON NEXT [Suspect]
     Dosage: 68 mg, UNK
     Dates: start: 20120516
  2. UNSPECIFIED INGREDIENT [Suspect]
     Dosage: 68 mg, UNK
     Dates: start: 20120516
  3. UNSPECIFIED INGREDIENT [Suspect]
     Dosage: 68 mg, UNK
     Dates: start: 20120516

REACTIONS (2)
  - Device difficult to use [Unknown]
  - No adverse event [Unknown]
